FAERS Safety Report 16829019 (Version 2)
Quarter: 2019Q4

REPORT INFORMATION
  Report Type: Report from Study
  Country: IT (occurrence: IT)
  Receive Date: 20190919
  Receipt Date: 20191227
  Transmission Date: 20200122
  Serious: Yes (Disabling, Other)
  Sender: FDA-Public Use
  Company Number: IT-GILEAD-2019-0428686

PATIENT
  Age: 74 Year
  Sex: Male
  Weight: 0 kg

DRUGS (1)
  1. SOFOSBUVIR W/VELPATASVIR [Suspect]
     Active Substance: SOFOSBUVIR\VELPATASVIR
     Indication: HEPATITIS C
     Dosage: 1 DOSAGE FORM, QD
     Route: 048
     Dates: start: 20190412, end: 20190708

REACTIONS (2)
  - Injury [Recovered/Resolved with Sequelae]
  - Hospitalisation [Recovered/Resolved with Sequelae]

NARRATIVE: CASE EVENT DATE: 20190712
